FAERS Safety Report 5476381-7 (Version None)
Quarter: 2007Q4

REPORT INFORMATION
  Report Type: 
  Country: None (occurrence: None)
  Receive Date: 20071003
  Receipt Date: 20070921
  Transmission Date: 20080405
  Serious: Yes (Other)
  Sender: FDA-Public Use
  Company Number: US-PFIZER INC-2007079256

PATIENT
  Sex: Female
  Weight: 74.545 kg

DRUGS (6)
  1. NEURONTIN [Suspect]
     Indication: NEUROPATHY PERIPHERAL
     Dates: start: 20010101, end: 20040101
  2. GABAPENTIN [Suspect]
     Indication: NEUROPATHY PERIPHERAL
     Dates: start: 20051209, end: 20051201
  3. LYRICA [Suspect]
     Indication: FIBROMYALGIA
  4. SOMA [Concomitant]
  5. CLONAZEPAM [Concomitant]
  6. ROZEREM [Concomitant]

REACTIONS (9)
  - AMNESIA [None]
  - CHRONIC OBSTRUCTIVE PULMONARY DISEASE [None]
  - DRUG INEFFECTIVE [None]
  - EUPHORIC MOOD [None]
  - FATIGUE [None]
  - FIBROMYALGIA [None]
  - MUSCLE SPASMS [None]
  - TRANSIENT ISCHAEMIC ATTACK [None]
  - URTICARIA [None]
